FAERS Safety Report 8235173-6 (Version None)
Quarter: 2012Q1

REPORT INFORMATION
  Report Type: 
  Country: None (occurrence: None)
  Receive Date: 20120326
  Receipt Date: 20120319
  Transmission Date: 20120608
  Serious: Yes (Hospitalization)
  Sender: FDA-Public Use
  Company Number: US-ABBOTT-12P-163-0916922-00

PATIENT
  Sex: Female
  Weight: 59.02 kg

DRUGS (6)
  1. PLAQUENIL [Concomitant]
     Indication: PRODUCT USED FOR UNKNOWN INDICATION
  2. NORVASC [Concomitant]
     Indication: HYPERTENSION
     Dates: start: 20120101
  3. HUMIRA [Suspect]
     Indication: CROHN'S DISEASE
     Dates: start: 20070601
  4. HUMIRA [Suspect]
     Indication: RHEUMATOID ARTHRITIS
  5. PENTASA [Concomitant]
     Indication: CROHN'S DISEASE
  6. SYNTHROID [Concomitant]
     Indication: PRODUCT USED FOR UNKNOWN INDICATION

REACTIONS (8)
  - DEHYDRATION [None]
  - GOUT [None]
  - PAIN IN EXTREMITY [None]
  - MUSCULOSKELETAL PAIN [None]
  - HYPERTENSION [None]
  - JOINT SWELLING [None]
  - OSTEOARTHRITIS [None]
  - ARTHRALGIA [None]
